FAERS Safety Report 12922449 (Version 1)
Quarter: 2016Q4

REPORT INFORMATION
  Report Type: Spontaneous
  Country: US (occurrence: US)
  Receive Date: 20161109
  Receipt Date: 20161109
  Transmission Date: 20170207
  Serious: No
  Sender: FDA-Public Use
  Company Number: US-FRESENIUS KABI-FK201608539

PATIENT
  Age: 74 Year
  Sex: Female

DRUGS (2)
  1. CYANOCOBALAMIN INJECTION, USP [Suspect]
     Active Substance: CYANOCOBALAMIN
     Indication: MALABSORPTION
     Route: 030
     Dates: start: 20161104, end: 20161104
  2. VITAMIN D [Concomitant]
     Active Substance: CHOLECALCIFEROL
     Indication: MALABSORPTION
     Route: 065

REACTIONS (8)
  - Swollen tongue [Recovering/Resolving]
  - Intentional underdose [Recovering/Resolving]
  - Intentional product misuse [Recovering/Resolving]
  - Dysgeusia [Recovering/Resolving]
  - Head discomfort [Recovering/Resolving]
  - Headache [Recovering/Resolving]
  - Dry mouth [Recovering/Resolving]
  - Tongue oedema [Recovering/Resolving]

NARRATIVE: CASE EVENT DATE: 20161104
